FAERS Safety Report 14552664 (Version 1)
Quarter: 2018Q1

REPORT INFORMATION
  Report Type: Not Available
  Country: MY (occurrence: MY)
  Receive Date: 20180220
  Receipt Date: 20180220
  Transmission Date: 20180509
  Serious: Yes (Hospitalization)
  Sender: FDA-Public Use
  Company Number: MY-ANIPHARMA-2018-MY-000001

PATIENT
  Age: 48 Year
  Sex: Female

DRUGS (4)
  1. RISPERIDONE (NON-SPECIFIC) [Concomitant]
     Active Substance: RISPERIDONE
  2. VALPROIC ACID (NON-SPECIFIC) [Concomitant]
     Active Substance: VALPROIC ACID
  3. ESCITALOPRAM [Concomitant]
     Active Substance: ESCITALOPRAM OXALATE
  4. PHENYTOIN SODIUM (NON-SPECIFIC) [Suspect]
     Active Substance: PHENYTOIN SODIUM

REACTIONS (2)
  - Ophthalmoplegia [Recovered/Resolved]
  - Cerebellar ataxia [Recovered/Resolved]
